FAERS Safety Report 5160264-6 (Version None)
Quarter: 2006Q4

REPORT INFORMATION
  Report Type: 
  Country: None (occurrence: None)
  Receive Date: 20061129
  Receipt Date: 20061128
  Transmission Date: 20070319
  Serious: Yes (Other)
  Sender: FDA-Public Use
  Company Number: 2006GPS02277

PATIENT
  Sex: Female

DRUGS (1)
  1. IMITREX [Suspect]
     Indication: DRUG USE FOR UNKNOWN INDICATION
     Route: 065

REACTIONS (2)
  - CHEST DISCOMFORT [None]
  - LOSS OF CONSCIOUSNESS [None]
